FAERS Safety Report 4568093-9 (Version None)
Quarter: 2005Q1

REPORT INFORMATION
  Report Type: 
  Country: None (occurrence: None)
  Receive Date: 20050128
  Receipt Date: 20050114
  Transmission Date: 20050727
  Serious: Yes (Death)
  Sender: FDA-Public Use
  Company Number: B0365317A

PATIENT

DRUGS (1)
  1. ALKERAN [Suspect]
     Indication: AMYLOIDOSIS

REACTIONS (5)
  - DIALYSIS [None]
  - GASTROINTESTINAL HAEMORRHAGE [None]
  - HYPOTENSION [None]
  - NEPHROPATHY TOXIC [None]
  - RENAL FAILURE ACUTE [None]
